FAERS Safety Report 9996811 (Version 1)
Quarter: 2014Q1

REPORT INFORMATION
  Report Type: Spontaneous
  Country: US (occurrence: US)
  Receive Date: 20140311
  Receipt Date: 20140311
  Transmission Date: 20141002
  Serious: No
  Sender: FDA-Public Use
  Company Number: US-GLAXOSMITHKLINE-A1008980A

PATIENT
  Age: 52 Year
  Sex: Male

DRUGS (1)
  1. NICORETTE FRESHMINT 2MG [Suspect]
     Indication: EX-TOBACCO USER
     Dates: start: 20130114, end: 20130116

REACTIONS (4)
  - Heart rate irregular [Recovered/Resolved]
  - Palpitations [Recovered/Resolved]
  - Discomfort [Recovered/Resolved]
  - Feeling abnormal [Recovered/Resolved]
